FAERS Safety Report 7789295-4 (Version None)
Quarter: 2011Q3

REPORT INFORMATION
  Report Type: 
  Country: None (occurrence: None)
  Receive Date: 20110930
  Receipt Date: 20110927
  Transmission Date: 20111222
  Serious: Yes (Other)
  Sender: FDA-Public Use
  Company Number: US-GLAXOSMITHKLINE-A0882795A

PATIENT
  Age: 40 Year
  Sex: Male
  Weight: 89.5 kg

DRUGS (2)
  1. AVANDIA [Suspect]
     Indication: DIABETES MELLITUS
     Dosage: 8MG PER DAY
     Route: 048
     Dates: start: 20020701, end: 20050101
  2. AVANDAMET [Suspect]
     Indication: DIABETES MELLITUS
     Route: 048
     Dates: start: 20050701, end: 20060201

REACTIONS (3)
  - BLINDNESS UNILATERAL [None]
  - MACULAR OEDEMA [None]
  - RETINAL VEIN OCCLUSION [None]
